FAERS Safety Report 7683759-X (Version None)
Quarter: 2011Q3

REPORT INFORMATION
  Report Type: 
  Country: None (occurrence: None)
  Receive Date: 20110815
  Receipt Date: 20110721
  Transmission Date: 20111222
  Serious: Yes (Other)
  Sender: FDA-Public Use
  Company Number: CA-PFIZER INC-2011185041

PATIENT
  Age: 64 Year
  Sex: Female

DRUGS (3)
  1. TRUSOPT [Concomitant]
     Dosage: MORNING AND EVENING
  2. ALPHAGAN [Concomitant]
     Dosage: MORNING AND EVENING
  3. XALATAN [Suspect]
     Indication: GLAUCOMA
     Dosage: 1 GTT AT BEDTIME
     Route: 047

REACTIONS (1)
  - INTRAOCULAR PRESSURE INCREASED [None]
